FAERS Safety Report 23080177 (Version 1)
Quarter: 2023Q4

REPORT INFORMATION
  Report Type: Spontaneous
  Country: NL (occurrence: NL)
  Receive Date: 20231018
  Receipt Date: 20231018
  Transmission Date: 20240110
  Serious: Yes (Hospitalization, Other)
  Sender: FDA-Public Use
  Company Number: NL-AMGEN-NLDSP2023173879

PATIENT
  Age: 30 Year
  Sex: Female

DRUGS (5)
  1. ADALIMUMAB [Suspect]
     Active Substance: ADALIMUMAB\ISOPROPYL ALCOHOL
     Indication: Pustular psoriasis
     Dosage: UNK
     Route: 065
  2. CYCLOSPORINE [Concomitant]
     Active Substance: CYCLOSPORINE
     Dosage: UNK
     Route: 065
  3. USTEKINUMAB [Concomitant]
     Active Substance: USTEKINUMAB
     Dosage: UNK
     Route: 065
  4. ACITRETIN [Concomitant]
     Active Substance: ACITRETIN
     Dosage: UNK
     Route: 065
  5. METHOTREXATE [Concomitant]
     Active Substance: METHOTREXATE
     Dosage: UNK
     Route: 065

REACTIONS (7)
  - Dermatitis exfoliative generalised [Unknown]
  - Pustular psoriasis [Unknown]
  - Maternal exposure during pregnancy [Unknown]
  - Stress [Unknown]
  - Leukocytosis [Unknown]
  - Upper respiratory tract infection [Unknown]
  - Therapeutic response decreased [Unknown]
